FAERS Safety Report 20988168 (Version 2)
Quarter: 2022Q4

REPORT INFORMATION
  Report Type: Spontaneous
  Country: US (occurrence: US)
  Receive Date: 20220621
  Receipt Date: 20221125
  Transmission Date: 20230113
  Serious: Yes (Other)
  Sender: FDA-Public Use
  Company Number: US-CYCLE PHARMACEUTICALS LTD-2022-CYC-000018

PATIENT

DRUGS (3)
  1. NITYR [Suspect]
     Active Substance: NITISINONE
     Indication: Tyrosinaemia
     Dosage: SUSPEND THREE 2MG (6MG) TABLETS IN ORAL SYRINGE WITH WATER IN THE MORNING
     Route: 048
  2. NITYR [Suspect]
     Active Substance: NITISINONE
     Dosage: SUSPEND FOUR 2MG (8MG) TABLETS IN ORAL SYRINGE WITH WATER IN THE EVENING
     Route: 048
  3. ZYRTEC [Concomitant]
     Active Substance: CETIRIZINE HYDROCHLORIDE
     Indication: Product used for unknown indication
     Dosage: UNK

REACTIONS (1)
  - Otoplasty [Unknown]
